FAERS Safety Report 8941641 (Version 2)
Quarter: 2012Q4

REPORT INFORMATION
  Report Type: 
  Country: AU (occurrence: AU)
  Receive Date: 20121203
  Receipt Date: 20121206
  Transmission Date: 20130627
  Serious: Yes (Death)
  Sender: FDA-Public Use
  Company Number: PHHY2012AU110345

PATIENT
  Age: 86 Year
  Sex: Male

DRUGS (1)
  1. ACLASTA [Suspect]
     Dosage: 5 mg, UNK
     Route: 042
     Dates: start: 20111103

REACTIONS (1)
  - Death [Fatal]
